FAERS Safety Report 15978347 (Version 1)
Quarter: 2019Q1

REPORT INFORMATION
  Report Type: Report from Study
  Country: BR (occurrence: BR)
  Receive Date: 20190219
  Receipt Date: 20190219
  Transmission Date: 20190418
  Serious: Yes (Disabling, Other)
  Sender: FDA-Public Use
  Company Number: BR-SA-2019SA041715

PATIENT
  Sex: Female
  Weight: 70 kg

DRUGS (1)
  1. INSULIN GLARGINE [Suspect]
     Active Substance: INSULIN GLARGINE
     Dosage: 24 IU, QD
     Route: 058

REACTIONS (4)
  - Lower limb fracture [Recovering/Resolving]
  - Immobile [Recovering/Resolving]
  - Hypoacusis [Recovering/Resolving]
  - Auditory disorder [Recovering/Resolving]
